FAERS Safety Report 7115077-2 (Version None)
Quarter: 2010Q4

REPORT INFORMATION
  Report Type: 
  Country: None (occurrence: None)
  Receive Date: 20101122
  Receipt Date: 20101109
  Transmission Date: 20110411
  Serious: Yes (Other)
  Sender: FDA-Public Use
  Company Number: GB-RANBAXY-2010R1-39543

PATIENT

DRUGS (3)
  1. FLUOXETINE [Suspect]
     Indication: ILL-DEFINED DISORDER
     Dosage: UNK
     Route: 065
  2. CONCERTA [Suspect]
     Indication: ATTENTION DEFICIT/HYPERACTIVITY DISORDER
     Dosage: 27 MG, QD
     Route: 048
     Dates: start: 20101005
  3. CONCERTA [Suspect]
     Dosage: 18 MG, QD
     Route: 048

REACTIONS (4)
  - AGGRESSION [None]
  - ANXIETY [None]
  - SELF INJURIOUS BEHAVIOUR [None]
  - SUICIDAL IDEATION [None]
